FAERS Safety Report 4699005-5 (Version None)
Quarter: 2005Q2

REPORT INFORMATION
  Report Type: 
  Country: None (occurrence: None)
  Receive Date: 20050623
  Receipt Date: 20050623
  Transmission Date: 20051028
  Serious: Yes (Other)
  Sender: FDA-Public Use
  Company Number: None

PATIENT
  Age: 56 Year
  Sex: Male

DRUGS (6)
  1. PROPAFENONE HCL [Suspect]
     Indication: PALPITATIONS
     Dosage: TAKING 1 TABLET BY MOUTH THREE TIMES A DAY
     Dates: start: 20050418
  2. LOTENSIN [Concomitant]
  3. TOPROL-XL [Concomitant]
  4. CELEBREX [Concomitant]
  5. PROTONIX [Concomitant]
  6. ALLEGRA [Concomitant]

REACTIONS (2)
  - PALPITATIONS [None]
  - PHARMACEUTICAL PRODUCT COMPLAINT [None]
